FAERS Safety Report 5603720-6 (Version None)
Quarter: 2008Q1

REPORT INFORMATION
  Report Type: 
  Country: None (occurrence: None)
  Receive Date: 20080128
  Receipt Date: 20071002
  Transmission Date: 20080703
  Serious: No
  Sender: FDA-Public Use
  Company Number: US-BAYER-US-2007-037127

PATIENT
  Age: 27 Year
  Sex: Female
  Weight: 85 kg

DRUGS (1)
  1. ANGELIQ [Suspect]
     Indication: ENDOMETRIOSIS
     Route: 048
     Dates: start: 20070929

REACTIONS (1)
  - ADNEXA UTERI PAIN [None]
